FAERS Safety Report 19570468 (Version 2)
Quarter: 2021Q3

REPORT INFORMATION
  Report Type: Spontaneous
  Country: US (occurrence: US)
  Receive Date: 20210716
  Receipt Date: 20210917
  Transmission Date: 20211014
  Serious: No
  Sender: FDA-Public Use
  Company Number: US-ELI_LILLY_AND_COMPANY-US202106008467

PATIENT
  Age: 42 Year
  Sex: Female

DRUGS (2)
  1. TALTZ [Suspect]
     Active Substance: IXEKIZUMAB
     Indication: PSORIASIS
     Dosage: 80 MG, OTHER (EVERY 2 WEEKS)
     Route: 058
     Dates: start: 20210521
  2. TALTZ [Suspect]
     Active Substance: IXEKIZUMAB
     Dosage: 80 MG, OTHER (EVERY 2 WEEKS)
     Route: 058
     Dates: start: 20210726

REACTIONS (5)
  - Head discomfort [Recovered/Resolved]
  - Pain [Recovered/Resolved]
  - Abdominal pain [Recovered/Resolved]
  - Vision blurred [Recovered/Resolved]
  - Nausea [Recovered/Resolved]

NARRATIVE: CASE EVENT DATE: 20210114
